FAERS Safety Report 8046476-2 (Version None)
Quarter: 2012Q1

REPORT INFORMATION
  Report Type: 
  Country: None (occurrence: None)
  Receive Date: 20120113
  Receipt Date: 20120109
  Transmission Date: 20120608
  Serious: Yes (Other)
  Sender: FDA-Public Use
  Company Number: US-ABBOTT-12P-163-0892252-00

PATIENT
  Sex: Male
  Weight: 110.78 kg

DRUGS (4)
  1. DIOVAN [Concomitant]
     Indication: PRODUCT USED FOR UNKNOWN INDICATION
  2. VERAPAMIL [Concomitant]
     Indication: PRODUCT USED FOR UNKNOWN INDICATION
  3. SYNTHROID [Concomitant]
     Indication: PRODUCT USED FOR UNKNOWN INDICATION
  4. SIMCOR [Suspect]
     Indication: BLOOD CHOLESTEROL INCREASED
     Dosage: 1000/20 MILLIGRAMS

REACTIONS (6)
  - PAIN [None]
  - FLUSHING [None]
  - ERYTHEMA [None]
  - ARRHYTHMIA [None]
  - HAEMORRHOIDS [None]
  - SKIN BURNING SENSATION [None]
